FAERS Safety Report 8304276-X (Version None)
Quarter: 2012Q2

REPORT INFORMATION
  Report Type: 
  Country: None (occurrence: None)
  Receive Date: 20120423
  Receipt Date: 20120416
  Transmission Date: 20120825
  Serious: Yes (Hospitalization, Other)
  Sender: FDA-Public Use
  Company Number: PHHO2009JP01653

PATIENT
  Sex: Male
  Weight: 93 kg

DRUGS (27)
  1. NEORAL [Suspect]
     Dosage: 400 MG DAILY
     Route: 048
     Dates: start: 20081203, end: 20081207
  2. NEORAL [Suspect]
     Dosage: 150 MG DAILY
     Route: 048
     Dates: start: 20090330
  3. PREDNISOLONE [Suspect]
     Dosage: 7.5 MG
     Route: 048
     Dates: start: 20090331, end: 20090525
  4. PREDNISOLONE [Concomitant]
     Indication: RENAL TRANSPLANT
     Dosage: 50 MG
     Route: 042
     Dates: start: 20081202, end: 20081202
  5. NEORAL [Suspect]
     Indication: RENAL TRANSPLANT
     Dosage: 450 MG
     Route: 048
     Dates: start: 20081130, end: 20081201
  6. AMPHOTERICIN B [Suspect]
     Dosage: UNK
  7. LIPITOR [Suspect]
     Dosage: UNK
  8. ISODINE [Concomitant]
  9. ADALAT [Suspect]
     Dosage: UNK
  10. EVEROLIMUS [Suspect]
     Dosage: 3.0 MG, QD
     Dates: start: 20100524, end: 20120115
  11. NEORAL [Suspect]
     Dosage: 350 MG DAILY
     Route: 048
     Dates: start: 20081208, end: 20081208
  12. NEORAL [Suspect]
     Dosage: 50 MG, QD
     Route: 048
     Dates: end: 20100808
  13. EVEROLIMUS [Suspect]
     Indication: RENAL TRANSPLANT
     Dosage: 0.75 MG, BID
     Route: 048
     Dates: start: 20081203, end: 20100523
  14. NEORAL [Suspect]
     Dosage: 225 MG DAILY
     Route: 048
     Dates: start: 20081227, end: 20090104
  15. PREDNISOLONE [Suspect]
     Indication: RENAL TRANSPLANT
     Dosage: 50 MG, QD
     Route: 048
     Dates: start: 20081203
  16. SIMULECT [Concomitant]
     Indication: RENAL TRANSPLANT
     Dosage: 20 MG, ONCE/SINGLE
     Route: 048
     Dates: start: 20081202, end: 20081202
  17. SIMULECT [Concomitant]
     Dosage: 20 MG, ONCE/SINGLE
     Route: 048
     Dates: start: 20081206, end: 20081206
  18. EVEROLIMUS [Suspect]
     Dosage: 2 MG, QD
     Dates: start: 20120116, end: 20120227
  19. NEORAL [Suspect]
     Dosage: 250 MG DAILY
     Route: 048
     Dates: start: 20081219, end: 20081226
  20. MICARDIS [Suspect]
     Dosage: 100 MG, BID
     Route: 048
     Dates: start: 20090330
  21. PROTECADIN [Suspect]
     Dosage: UNK
  22. NEORAL [Suspect]
     Dosage: 325 MG DAILY
     Route: 048
     Dates: start: 20081209, end: 20081209
  23. NEORAL [Suspect]
     Dosage: 200 MG DAILY
     Route: 048
     Dates: start: 20090105, end: 20090329
  24. NEORAL [Suspect]
     Dosage: 75 MG, QD
     Route: 048
     Dates: start: 20100809
  25. PREDNISOLONE [Suspect]
     Dosage: 10 MG, QD
     Route: 048
     Dates: start: 20090205
  26. COTRIM [Suspect]
     Dosage: 1DF
     Route: 048
     Dates: start: 20090202
  27. NEORAL [Suspect]
     Dosage: 300 MG DAILY
     Route: 048
     Dates: start: 20081210, end: 20081218

REACTIONS (10)
  - WOUND DECOMPOSITION [None]
  - ABSCESS [None]
  - NEPHROPATHY [None]
  - IMPAIRED HEALING [None]
  - FLUID RETENTION [None]
  - BLOOD CREATININE INCREASED [None]
  - CHRONIC ALLOGRAFT NEPHROPATHY [None]
  - PYREXIA [None]
  - RENAL DISORDER [None]
  - EFFUSION [None]
